FAERS Safety Report 9365024 (Version 1)
Quarter: 2013Q2

REPORT INFORMATION
  Report Type: Spontaneous
  Country: US (occurrence: US)
  Receive Date: 20130624
  Receipt Date: 20130624
  Transmission Date: 20140414
  Serious: No
  Sender: FDA-Public Use
  Company Number: US-PFIZER INC-2013184257

PATIENT
  Age: 80 Year
  Sex: Male
  Weight: 71.66 kg

DRUGS (1)
  1. INLYTA [Suspect]
     Indication: RENAL CANCER
     Dosage: 5 MG TWICE A DAY (1 TABLET)
     Route: 048
     Dates: start: 20130408, end: 20130610

REACTIONS (1)
  - Weight decreased [Unknown]
